FAERS Safety Report 7768970-1 (Version None)
Quarter: 2011Q3

REPORT INFORMATION
  Report Type: 
  Country: None (occurrence: None)
  Receive Date: 20110922
  Receipt Date: 20110317
  Transmission Date: 20111222
  Serious: No
  Sender: FDA-Public Use
  Company Number: US-ASTRAZENECA-2011SE15108

PATIENT
  Age: 80 Year
  Sex: Female
  Weight: 42.6 kg

DRUGS (7)
  1. PAROXETINE HYDROCHLORIDE [Concomitant]
     Indication: DEPRESSION
  2. LIYCINOPRIL [Concomitant]
     Indication: HYPERTENSION
  3. TERAZOSIN HCL [Concomitant]
  4. ARACEPT [Concomitant]
     Indication: DEMENTIA
  5. CARBETOLOL [Concomitant]
  6. SEROQUEL [Suspect]
     Indication: DEPRESSION
     Route: 048
     Dates: start: 20090101
  7. LEVOTHYROXINE SODIUM [Concomitant]

REACTIONS (1)
  - DEMENTIA ALZHEIMER'S TYPE [None]
